FAERS Safety Report 6409489-X (Version None)
Quarter: 2009Q4

REPORT INFORMATION
  Report Type: 
  Country: None (occurrence: None)
  Receive Date: 20091019
  Receipt Date: 20090930
  Transmission Date: 20100525
  Serious: Yes (Other)
  Sender: FDA-Public Use
  Company Number: 20090436

PATIENT
  Age: 18 Year
  Sex: Female

DRUGS (3)
  1. ACETYLCYSTEINE SOLUTION, USP (7504-25) 100MG/ML (10%) [Suspect]
     Dosage: 150 MG/KG BOLUS OVER 15 MIN INTRAVENOUS
     Route: 042
  2. DIPHENHYDRAMINE [Concomitant]
  3. ACETAMINOPHEN [Concomitant]

REACTIONS (5)
  - ANAPHYLACTOID REACTION [None]
  - LIVER TRANSPLANT [None]
  - MENTAL STATUS CHANGES [None]
  - PROTHROMBIN TIME PROLONGED [None]
  - TRANSAMINASES INCREASED [None]
